FAERS Safety Report 7633675-4 (Version None)
Quarter: 2011Q3

REPORT INFORMATION
  Report Type: 
  Country: None (occurrence: None)
  Receive Date: 20110725
  Receipt Date: 20110716
  Transmission Date: 20111222
  Serious: Yes (Other)
  Sender: FDA-Public Use
  Company Number: CN-GLAXOSMITHKLINE-B0734460A

PATIENT
  Age: 36 Year
  Sex: Male
  Weight: 75 kg

DRUGS (1)
  1. HEPTODIN [Suspect]
     Indication: HEPATITIS
     Dosage: 100MG PER DAY
     Route: 048
     Dates: start: 20100601

REACTIONS (2)
  - BLOOD BILIRUBIN INCREASED [None]
  - BILIRUBIN CONJUGATED INCREASED [None]
